FAERS Safety Report 17052162 (Version 2)
Quarter: 2021Q2

REPORT INFORMATION
  Report Type: Other
  Country: CA (occurrence: CA)
  Receive Date: 20191120
  Receipt Date: 20210414
  Transmission Date: 20210716
  Serious: Yes (Death, Hospitalization, Other)
  Sender: FDA-Public Use
  Company Number: CA-APOTEX-2019AP024720

PATIENT
  Age: 57 Year
  Sex: Female

DRUGS (5)
  1. CARBAMAZEPINE. [Suspect]
     Active Substance: CARBAMAZEPINE
     Indication: PRODUCT USED FOR UNKNOWN INDICATION
     Dosage: UNK
     Route: 065
  2. CEFALEXINE [Suspect]
     Active Substance: CEPHALEXIN
     Indication: PRODUCT USED FOR UNKNOWN INDICATION
     Dosage: UNK
     Route: 065
  3. SANDOSTATIN [Suspect]
     Active Substance: OCTREOTIDE ACETATE
     Indication: ACROMEGALY
     Dosage: 30 MG, Q.M.T.
     Route: 030
  4. CLONAZEPAM. [Suspect]
     Active Substance: CLONAZEPAM
     Indication: PRODUCT USED FOR UNKNOWN INDICATION
     Dosage: UNK
     Route: 065
  5. SANDOSTATIN LAR DEPOT [Suspect]
     Active Substance: OCTREOTIDE ACETATE
     Indication: ACROMEGALY
     Dosage: 30 MILLIGRAM, Q.M.T.
     Route: 030

REACTIONS (32)
  - Breast tenderness [Fatal]
  - Cough [Fatal]
  - Headache [Fatal]
  - Illness [Fatal]
  - Malignant neoplasm progression [Fatal]
  - Drug hypersensitivity [Fatal]
  - Rhinorrhoea [Fatal]
  - Rib fracture [Fatal]
  - Arthralgia [Fatal]
  - Cancer pain [Fatal]
  - Neoplasm malignant [Fatal]
  - Palpitations [Fatal]
  - Productive cough [Fatal]
  - Bone cancer [Fatal]
  - Breast cancer [Fatal]
  - Metastasis [Fatal]
  - Nasal congestion [Fatal]
  - Pain in extremity [Fatal]
  - Diarrhoea [Fatal]
  - Fatigue [Fatal]
  - Injection site pain [Fatal]
  - Pain [Fatal]
  - Vomiting [Fatal]
  - Feeling abnormal [Fatal]
  - Decreased appetite [Fatal]
  - Nasopharyngitis [Fatal]
  - Pneumonia [Fatal]
  - Blood pressure increased [Unknown]
  - Memory impairment [Fatal]
  - Breast pain [Fatal]
  - Emotional disorder [Fatal]
  - Hypertension [Fatal]
